FAERS Safety Report 5321635-8 (Version None)
Quarter: 2007Q1

REPORT INFORMATION
  Report Type: 
  Country: None (occurrence: None)
  Receive Date: 20070215
  Receipt Date: 20061021
  Transmission Date: 20070707
  Serious: No
  Sender: FDA-Public Use
  Company Number: 200616268BWH

PATIENT
  Age: 52 Year
  Sex: Male

DRUGS (2)
  1. NEXAVAR [Suspect]
     Indication: NEOPLASM MALIGNANT
     Dosage: SEE IMAGE
     Route: 048
  2. NEXAVAR [Suspect]
     Indication: NEOPLASM MALIGNANT
     Dosage: SEE IMAGE
     Route: 048
     Dates: start: 20060621

REACTIONS (1)
  - BLOOD PRESSURE INCREASED [None]
